FAERS Safety Report 21269373 (Version 5)
Quarter: 2022Q4

REPORT INFORMATION
  Report Type: Other
  Country: EG (occurrence: EG)
  Receive Date: 20220830
  Receipt Date: 20221122
  Transmission Date: 20230113
  Serious: Yes (Other)
  Sender: FDA-Public Use
  Company Number: EG-002147023-NVSC2022EG188645

PATIENT
  Age: 30 Year
  Sex: Female

DRUGS (7)
  1. XOLAIR [Suspect]
     Active Substance: OMALIZUMAB
     Indication: Asthma
     Dosage: 150 MG, BIW (2 XOLAIR INJECTIONS)
     Route: 058
     Dates: start: 20220803
  2. XOLAIR [Suspect]
     Active Substance: OMALIZUMAB
     Dosage: 150 MG, BIW (ONE XOLAIR INJECTION)
     Route: 058
     Dates: start: 20220820
  3. SPIRIVA [Concomitant]
     Active Substance: TIOTROPIUM BROMIDE MONOHYDRATE
     Indication: Asthma
     Dosage: UNK, QD (DAILY)
     Dates: start: 202203
  4. SERETIDE [Concomitant]
     Active Substance: FLUTICASONE PROPIONATE\SALMETEROL XINAFOATE
     Indication: Asthma
     Dosage: UNK, BID (IN THE MORNING AND EVENING)
     Dates: start: 202203
  5. EBASTINE [Concomitant]
     Active Substance: EBASTINE
     Indication: Asthma
     Dosage: UNK, QD (BEFORE BED)
     Dates: start: 202203
  6. CAL-MAG [CALCIUM CARBONATE;MAGNESIUM HYDROXIDE] [Concomitant]
     Indication: Pain in extremity
     Dosage: UNK, QD
     Dates: start: 20220808
  7. ALLERBAN (SOUTH KOREA) [Concomitant]
     Indication: Asthma
     Dates: start: 202203

REACTIONS (17)
  - Vomiting [Recovered/Resolved]
  - Lethargy [Recovered/Resolved]
  - Insomnia [Recovered/Resolved]
  - Dysstasia [Recovered/Resolved]
  - Limb discomfort [Recovering/Resolving]
  - Pyrexia [Recovered/Resolved]
  - Abdominal pain upper [Recovered/Resolved]
  - Dizziness [Recovered/Resolved]
  - Tremor [Recovering/Resolving]
  - Arthralgia [Recovering/Resolving]
  - Headache [Not Recovered/Not Resolved]
  - Dyspnoea [Recovered/Resolved]
  - Insomnia [Not Recovered/Not Resolved]
  - Vitamin D deficiency [Unknown]
  - Cardiac disorder [Recovered/Resolved]
  - Abdominal pain [Recovered/Resolved]
  - Product dose omission issue [Unknown]

NARRATIVE: CASE EVENT DATE: 20220804
